FAERS Safety Report 6031597-6 (Version None)
Quarter: 2008Q4

REPORT INFORMATION
  Report Type: 
  Country: None (occurrence: None)
  Receive Date: 20081229
  Receipt Date: 20080909
  Transmission Date: 20090506
  Serious: Yes (Hospitalization)
  Sender: FDA-Public Use
  Company Number: 177284USA

PATIENT
  Age: 45 Year
  Sex: Male

DRUGS (1)
  1. CLOZAPINE [Suspect]
     Dosage: 150 MG (50 MG,3 IN 1 D),ORAL
     Route: 048

REACTIONS (2)
  - DIZZINESS [None]
  - HALLUCINATION [None]
